FAERS Safety Report 7009981-3 (Version None)
Quarter: 2010Q3

REPORT INFORMATION
  Report Type: 
  Country: None (occurrence: None)
  Receive Date: 20100923
  Receipt Date: 20100917
  Transmission Date: 20110219
  Serious: Yes (Disabling)
  Sender: FDA-Public Use
  Company Number: US-MERCK-1007USA03579

PATIENT
  Age: 72 Year
  Sex: Male
  Weight: 110 kg

DRUGS (16)
  1. JANUVIA [Suspect]
     Indication: TYPE 2 DIABETES MELLITUS
     Route: 048
     Dates: start: 20100713, end: 20100726
  2. GLUCOTROL [Concomitant]
     Route: 065
  3. FLOVENT HFA [Concomitant]
     Route: 065
  4. SAW PALMETTO [Concomitant]
     Route: 065
  5. VITAMIN E [Concomitant]
     Route: 065
  6. AMLODIPINE BESYLATE [Concomitant]
     Route: 065
  7. ATENOLOL [Concomitant]
     Route: 065
  8. HYDROCHLOROTHIAZIDE [Concomitant]
     Route: 048
  9. METFORMIN HYDROCHLORIDE [Concomitant]
     Route: 065
  10. PROAIR HFA [Concomitant]
     Route: 065
  11. ZYRTEC [Concomitant]
     Route: 065
  12. ASPIRIN [Concomitant]
     Route: 048
  13. FINASTERIDE [Concomitant]
     Route: 048
  14. LOVAZA [Concomitant]
     Route: 065
  15. ZOCOR [Suspect]
     Route: 048
     Dates: start: 20100713, end: 20100726
  16. MEDROL [Concomitant]
     Route: 065
     Dates: start: 20100713

REACTIONS (10)
  - ABNORMAL DREAMS [None]
  - ASTHENIA [None]
  - BLOOD CREATINE PHOSPHOKINASE INCREASED [None]
  - CHEST PAIN [None]
  - DIZZINESS [None]
  - FATIGUE [None]
  - HYPERHIDROSIS [None]
  - LIVER FUNCTION TEST ABNORMAL [None]
  - MYALGIA [None]
  - PAIN IN EXTREMITY [None]
